FAERS Safety Report 10254387 (Version 3)
Quarter: 2014Q3

REPORT INFORMATION
  Report Type: Report from Study
  Country: FR (occurrence: FR)
  Receive Date: 20140624
  Receipt Date: 20140701
  Transmission Date: 20150326
  Serious: Yes (Other)
  Sender: FDA-Public Use
  Company Number: FR-ROCHE-1418415

PATIENT
  Age: 46 Year
  Sex: Female
  Weight: 87 kg

DRUGS (12)
  1. CHLORMADINONE [Concomitant]
     Active Substance: CHLORMADINONE
     Route: 065
     Dates: start: 20140417
  2. MICARDIS [Concomitant]
     Active Substance: TELMISARTAN
  3. PEGINTERFERON ALFA-2A [Suspect]
     Active Substance: PEGINTERFERON ALFA-2A
     Indication: HEPATITIS C
     Route: 065
     Dates: start: 20140321, end: 20140528
  4. RIBAVIRIN. [Suspect]
     Active Substance: RIBAVIRIN
     Indication: HEPATITIS C
     Route: 065
     Dates: start: 20140507, end: 20140528
  5. RIBAVIRIN. [Suspect]
     Active Substance: RIBAVIRIN
     Route: 065
     Dates: start: 20140530, end: 20140601
  6. ASUNAPREVIR [Suspect]
     Active Substance: ASUNAPREVIR
     Route: 065
     Dates: start: 20140530, end: 20140601
  7. PARACETAMOL [Concomitant]
     Active Substance: ACETAMINOPHEN
     Route: 065
     Dates: start: 20140321, end: 20140525
  8. SPIRONOLACTONE. [Concomitant]
     Active Substance: SPIRONOLACTONE
     Indication: HYPERTENSION
     Route: 065
  9. DACLATASVIR [Suspect]
     Active Substance: DACLATASVIR
     Route: 065
     Dates: start: 20140530, end: 20140601
  10. DACLATASVIR [Suspect]
     Active Substance: DACLATASVIR
     Indication: HEPATITIS C
     Route: 065
     Dates: start: 20140321, end: 20140528
  11. ASUNAPREVIR [Suspect]
     Active Substance: ASUNAPREVIR
     Indication: HEPATITIS C
     Route: 065
     Dates: start: 20140321, end: 20140528
  12. RIBAVIRIN. [Suspect]
     Active Substance: RIBAVIRIN
     Route: 065
     Dates: start: 20130321, end: 20140506

REACTIONS (2)
  - Alanine aminotransferase increased [Not Recovered/Not Resolved]
  - Aspartate aminotransferase increased [Not Recovered/Not Resolved]

NARRATIVE: CASE EVENT DATE: 20140528
